FAERS Safety Report 4721994-0 (Version None)
Quarter: 2005Q3

REPORT INFORMATION
  Report Type: 
  Country: None (occurrence: None)
  Receive Date: 20050720
  Receipt Date: 20050708
  Transmission Date: 20060218
  Serious: Yes (Death, Hospitalization)
  Sender: FDA-Public Use
  Company Number: GBWYE219522NOV04

PATIENT

DRUGS (2)
  1. GEMTUZUMAB OZOGAMICIN (GEMTUZUMAB OZOGAMICIN, INJECTION) [Suspect]
     Indication: ACUTE MYELOID LEUKAEMIA
  2. ARA-C (CYTARABINE), HIGH DOSE [Concomitant]

REACTIONS (9)
  - CONJUNCTIVAL HAEMORRHAGE [None]
  - DISEASE PROGRESSION [None]
  - ESCHERICHIA SEPSIS [None]
  - FUNGAL INFECTION [None]
  - PLATELET COUNT DECREASED [None]
  - PNEUMOCYSTIS JIROVECI PNEUMONIA [None]
  - RESPIRATORY DISTRESS [None]
  - STREPTOCOCCAL SEPSIS [None]
  - URINARY RETENTION [None]
